FAERS Safety Report 10374682 (Version 1)
Quarter: 2014Q1

REPORT INFORMATION
  Report Type: Spontaneous
  Country: US (occurrence: None)
  Receive Date: 20140306
  Receipt Date: 20140306
  Transmission Date: 20141002
  Serious: Yes (Hospitalization, Other)
  Sender: FDA-Public Use
  Company Number: 163-21880-13063900

PATIENT
  Age: 80 Year
  Sex: Female
  Weight: 54.89 kg

DRUGS (1)
  1. REVLIMID (LENALIDOMIDE) (25 MILLLIGRAM, CAPSULES) [Suspect]
     Indication: PLASMA CELL MYELOMA
     Route: 048
     Dates: start: 201208, end: 201301

REACTIONS (2)
  - Weight decreased [None]
  - General physical health deterioration [None]
